FAERS Safety Report 16320635 (Version 2)
Quarter: 2019Q2

REPORT INFORMATION
  Report Type: Spontaneous
  Country: GB (occurrence: GB)
  Receive Date: 20190516
  Receipt Date: 20190518
  Transmission Date: 20190711
  Serious: Yes (Hospitalization, Other)
  Sender: FDA-Public Use
  Company Number: PHHY2019GB110826

PATIENT
  Sex: Male

DRUGS (1)
  1. ZARZIO [Suspect]
     Active Substance: FILGRASTIM
     Indication: PRODUCT USED FOR UNKNOWN INDICATION
     Dosage: 480 UG, UNK
     Route: 058
     Dates: start: 20190510

REACTIONS (17)
  - Pain in extremity [Unknown]
  - Dyskinesia [Unknown]
  - Anaphylactic shock [Unknown]
  - Dysarthria [Unknown]
  - Bone pain [Unknown]
  - White blood cell count increased [Unknown]
  - Loss of consciousness [Unknown]
  - Fatigue [Unknown]
  - Feeling hot [Unknown]
  - Nervousness [Recovered/Resolved]
  - Feeling abnormal [Unknown]
  - Aphasia [Unknown]
  - Feeling cold [Unknown]
  - Dizziness [Unknown]
  - Pallor [Unknown]
  - Arthralgia [Unknown]
  - Cyanosis [Recovered/Resolved]
